FAERS Safety Report 11878964 (Version 10)
Quarter: 2017Q2

REPORT INFORMATION
  Report Type: Report from Study
  Country: CA (occurrence: CA)
  Receive Date: 20151230
  Receipt Date: 20170411
  Transmission Date: 20170829
  Serious: Yes (Death, Hospitalization, Other)
  Sender: FDA-Public Use
  Company Number: PHHY2012CA098553

PATIENT
  Age: 55 Year
  Sex: Female

DRUGS (6)
  1. PERCOCET [Concomitant]
     Active Substance: ACETAMINOPHEN\OXYCODONE HYDROCHLORIDE
     Indication: PRODUCT USED FOR UNKNOWN INDICATION
     Dosage: UNK
     Route: 065
  2. SANDOSTATIN [Suspect]
     Active Substance: OCTREOTIDE ACETATE
     Indication: NEUROENDOCRINE TUMOUR
     Dosage: 100 UG, TID
     Route: 058
     Dates: start: 20110316
  3. SANDOSTATIN LAR DEPOT [Suspect]
     Active Substance: OCTREOTIDE ACETATE
     Dosage: 20 MG, QMO
     Route: 030
     Dates: start: 20110401, end: 20160420
  4. SANDOSTATIN LAR DEPOT [Suspect]
     Active Substance: OCTREOTIDE ACETATE
     Indication: NEUROENDOCRINE TUMOUR
     Dosage: 20 MG, QMO (EVERY 4 WEEKS/ONCE A MONTH)
     Route: 030
     Dates: start: 20110328
  5. SANDOSTATIN LAR DEPOT [Suspect]
     Active Substance: OCTREOTIDE ACETATE
     Dosage: 30 MG, QMO (EVERY 4 WEEKS)
     Route: 030
     Dates: start: 20160519
  6. POTASSIUM [Concomitant]
     Active Substance: POTASSIUM
     Indication: PRODUCT USED FOR UNKNOWN INDICATION
     Dosage: UNK
     Route: 065

REACTIONS (21)
  - Deep vein thrombosis [Unknown]
  - Blood pressure systolic increased [Unknown]
  - Abdominal mass [Unknown]
  - Blood pressure increased [Unknown]
  - Blood pressure diastolic increased [Unknown]
  - Blood glucose increased [Unknown]
  - Drug ineffective [Unknown]
  - Body temperature decreased [Unknown]
  - Blood glucose decreased [Unknown]
  - Blood pressure diastolic decreased [Unknown]
  - Blood potassium decreased [Unknown]
  - Diarrhoea [Unknown]
  - Renal failure [Unknown]
  - Death [Fatal]
  - Nausea [Unknown]
  - Vomiting [Unknown]
  - Fatigue [Unknown]
  - Heart rate increased [Unknown]
  - Malaise [Unknown]
  - Heart rate decreased [Unknown]
  - Incorrect route of drug administration [Unknown]

NARRATIVE: CASE EVENT DATE: 20121023
